FAERS Safety Report 23067174 (Version 2)
Quarter: 2023Q4

REPORT INFORMATION
  Report Type: Spontaneous
  Country: US (occurrence: US)
  Receive Date: 20231016
  Receipt Date: 20231018
  Transmission Date: 20240110
  Serious: No
  Sender: FDA-Public Use
  Company Number: US-ABBVIE-5450258

PATIENT
  Sex: Female

DRUGS (2)
  1. LASTACAFT [Suspect]
     Active Substance: ALCAFTADINE
     Indication: Conjunctivitis allergic
     Route: 065
  2. MAGNESIUM [Suspect]
     Active Substance: MAGNESIUM
     Indication: Product used for unknown indication
     Route: 065

REACTIONS (3)
  - Myasthenia gravis [Unknown]
  - Ophthalmoplegia [Unknown]
  - Eyelid ptosis [Unknown]
